FAERS Safety Report 12086894 (Version 1)
Quarter: 2016Q1

REPORT INFORMATION
  Report Type: Spontaneous
  Country: US (occurrence: US)
  Receive Date: 20160217
  Receipt Date: 20160217
  Transmission Date: 20160526
  Serious: No
  Sender: FDA-Public Use
  Company Number: US-ALLERGAN-1508432US

PATIENT
  Sex: Female
  Weight: 58.5 kg

DRUGS (2)
  1. RESTASIS [Suspect]
     Active Substance: CYCLOSPORINE
     Indication: DRY EYE
     Dosage: ONE DROP IN EACH EYE TWICE A DAY
     Route: 047
     Dates: start: 2011
  2. FAMOTIDINE. [Concomitant]
     Active Substance: FAMOTIDINE
     Indication: OESOPHAGEAL DISORDER
     Dosage: 20MG TWICE A DAY
     Route: 048

REACTIONS (3)
  - Eye pain [Not Recovered/Not Resolved]
  - Vision blurred [Recovering/Resolving]
  - Eye irritation [Not Recovered/Not Resolved]
